FAERS Safety Report 10222058 (Version 2)
Quarter: 2014Q2

REPORT INFORMATION
  Report Type: Spontaneous
  Country: BR (occurrence: BR)
  Receive Date: 20140606
  Receipt Date: 20140606
  Transmission Date: 20141212
  Serious: No
  Sender: FDA-Public Use
  Company Number: BR-BIOMARINAP-BR-2014-102753

PATIENT
  Sex: Female
  Weight: 33 kg

DRUGS (1)
  1. NAGLAZYME [Suspect]
     Indication: MUCOPOLYSACCHARIDOSIS VI
     Dosage: UNK, QW
     Route: 041
     Dates: start: 20090219

REACTIONS (4)
  - Weight decreased [Unknown]
  - Headache [Recovering/Resolving]
  - Hyperthermia [Recovering/Resolving]
  - Nausea [Recovering/Resolving]
